FAERS Safety Report 7928352-6 (Version None)
Quarter: 2011Q4

REPORT INFORMATION
  Report Type: 
  Country: None (occurrence: None)
  Receive Date: 20111118
  Receipt Date: 20111109
  Transmission Date: 20120403
  Serious: Yes (Hospitalization, Other)
  Sender: FDA-Public Use
  Company Number: PHHY2011IR099935

PATIENT
  Age: 20 Year
  Sex: Female

DRUGS (4)
  1. PYRIMETHAMINE TAB [Concomitant]
     Indication: EYE INFECTION TOXOPLASMAL
     Dosage: 50 MG, UNK
  2. SULFADIAZINE [Suspect]
     Indication: EYE INFECTION TOXOPLASMAL
     Dosage: 3 MG, UNK
  3. PREDNISOLONE [Concomitant]
     Indication: EYE INFECTION TOXOPLASMAL
     Dosage: 75 MG, UNK
  4. LEUCOVORIN CALCIUM [Concomitant]
     Indication: EYE INFECTION TOXOPLASMAL
     Dosage: 15 MG, UNK

REACTIONS (9)
  - HEPATITIS FULMINANT [None]
  - HEPATORENAL SYNDROME [None]
  - NAUSEA [None]
  - VOMITING [None]
  - CONFUSIONAL STATE [None]
  - DECREASED APPETITE [None]
  - HEPATOTOXICITY [None]
  - JAUNDICE [None]
  - NEPHROPATHY TOXIC [None]
